FAERS Safety Report 7996368-X (Version None)
Quarter: 2011Q4

REPORT INFORMATION
  Report Type: 
  Country: None (occurrence: None)
  Receive Date: 20111220
  Receipt Date: 20111216
  Transmission Date: 20120403
  Serious: Yes (Death)
  Sender: FDA-Public Use
  Company Number: US-ASTRAZENECA-2011SE76549

PATIENT
  Age: 45 Year
  Sex: Male

DRUGS (7)
  1. QUETIAPINE [Suspect]
     Route: 048
  2. VALPROIC ACID [Suspect]
     Route: 048
  3. DULOXETINE HYDROCHLORIDE [Suspect]
     Route: 048
  4. LISINOPRIL [Suspect]
     Route: 048
  5. ESOMEPRAZOLE SODIUM [Suspect]
     Route: 048
  6. DIAZEPAM [Suspect]
     Route: 048
  7. ATORVASTATIN [Suspect]
     Route: 048

REACTIONS (2)
  - COMPLETED SUICIDE [None]
  - TOXICITY TO VARIOUS AGENTS [None]
